FAERS Safety Report 8103460-8 (Version None)
Quarter: 2012Q1

REPORT INFORMATION
  Report Type: 
  Country: None (occurrence: None)
  Receive Date: 20120201
  Receipt Date: 20120124
  Transmission Date: 20120608
  Serious: Yes (Hospitalization)
  Sender: FDA-Public Use
  Company Number: JP-SANOFI-AVENTIS-2012SA002148

PATIENT
  Age: 55 Year
  Sex: Female

DRUGS (1)
  1. LASIX [Suspect]
     Indication: OEDEMA
     Dosage: 20 MG TABLET
     Route: 065

REACTIONS (2)
  - RESPIRATORY DEPRESSION [None]
  - METABOLIC ALKALOSIS [None]
